FAERS Safety Report 7311059-6 (Version None)
Quarter: 2011Q1

REPORT INFORMATION
  Report Type: 
  Country: None (occurrence: None)
  Receive Date: 20110224
  Receipt Date: 20110215
  Transmission Date: 20110831
  Serious: Yes (Other)
  Sender: FDA-Public Use
  Company Number: US-PFIZER INC-2010149892

PATIENT
  Sex: Female
  Weight: 83.9 kg

DRUGS (1)
  1. OMNICEF [Suspect]
     Indication: INFLUENZA LIKE ILLNESS
     Dosage: 300 MG, 2X/DAY
     Route: 048
     Dates: start: 20101110, end: 20101117

REACTIONS (6)
  - NAUSEA [None]
  - HAEMATOCHEZIA [None]
  - MUCOUS STOOLS [None]
  - DIARRHOEA [None]
  - VOMITING [None]
  - ABDOMINAL PAIN LOWER [None]
